FAERS Safety Report 13502435 (Version 1)
Quarter: 2017Q2

REPORT INFORMATION
  Report Type: Spontaneous
  Country: IT (occurrence: IT)
  Receive Date: 20170502
  Receipt Date: 20170502
  Transmission Date: 20170830
  Serious: Yes (Disabling, Other)
  Sender: FDA-Public Use
  Company Number: IT-AMGEN-ITASP2017063359

PATIENT
  Age: 44 Year
  Sex: Female

DRUGS (7)
  1. FEMARA [Concomitant]
     Active Substance: LETROZOLE
     Indication: BREAST CANCER METASTATIC
     Dosage: 2.5 MG, UNK
     Route: 048
     Dates: start: 20160401, end: 20170420
  2. ZOMETA [Suspect]
     Active Substance: ZOLEDRONIC ACID
     Indication: BREAST CANCER METASTATIC
     Dosage: 4 MG, CYCLICAL
     Route: 042
     Dates: start: 201401, end: 201403
  3. AVASTIN [Concomitant]
     Active Substance: BEVACIZUMAB
     Indication: BREAST CANCER METASTATIC
     Dosage: UNK
     Dates: start: 201401, end: 201507
  4. TAMOXIFENE CITRATE [Concomitant]
     Active Substance: TAMOXIFEN CITRATE
     Indication: BREAST CANCER METASTATIC
     Dosage: 1 (POSOLOGIC UNIT)
     Route: 048
     Dates: start: 20140701, end: 20160330
  5. DECAPEPTYL [Concomitant]
     Active Substance: TRIPTORELIN
     Indication: BREAST CANCER METASTATIC
     Dosage: 1 (POSOLOGIC)
     Route: 058
  6. PANTORC [Concomitant]
     Active Substance: PANTOPRAZOLE SODIUM
     Dosage: 1 (POSOLOGIC UNIT)
     Route: 048
  7. XGEVA [Suspect]
     Active Substance: DENOSUMAB
     Indication: BREAST CANCER METASTATIC
     Dosage: 120 MG, QMO
     Route: 058
     Dates: start: 201404, end: 201701

REACTIONS (1)
  - Osteonecrosis of jaw [Recovering/Resolving]

NARRATIVE: CASE EVENT DATE: 20160720
